FAERS Safety Report 9031355 (Version 1)
Quarter: 2013Q1

REPORT INFORMATION
  Report Type: Spontaneous
  Country: CH (occurrence: CH)
  Receive Date: 20130124
  Receipt Date: 20130124
  Transmission Date: 20140127
  Serious: Yes (Hospitalization)
  Sender: FDA-Public Use
  Company Number: PHHY2013CH004110

PATIENT
  Age: 86 None
  Sex: Male

DRUGS (6)
  1. DIGOXIN [Suspect]
     Indication: ATRIAL FIBRILLATION
     Dosage: 0.125 MG, QD
     Route: 048
     Dates: start: 201210, end: 20121212
  2. CORDARONE [Interacting]
     Indication: ATRIAL FIBRILLATION
     Dosage: 200 MG, QD
     Route: 048
     Dates: start: 201210, end: 20121212
  3. MARCOUMAR [Interacting]
     Indication: ATRIAL FIBRILLATION
     Dosage: 3 MG, UNK
     Route: 048
     Dates: end: 20121212
  4. PRADIF [Concomitant]
     Dosage: 400 UG, UNK
     Route: 048
  5. PANTOZOL [Concomitant]
     Dosage: 40 MG, UNK
     Route: 048
  6. TOREM [Concomitant]
     Dosage: 10 MG, UNK
     Route: 048

REACTIONS (14)
  - Supraventricular tachycardia [Recovered/Resolved]
  - Atrioventricular block [Recovered/Resolved]
  - Syncope [Recovered/Resolved]
  - Hypovolaemia [Recovered/Resolved]
  - Renal failure acute [Recovering/Resolving]
  - Weight decreased [Unknown]
  - International normalised ratio increased [Recovering/Resolving]
  - Hyperthyroidism [Unknown]
  - Haemorrhage [Recovered/Resolved]
  - Toxicity to various agents [Not Recovered/Not Resolved]
  - Nausea [Unknown]
  - Vomiting [Recovered/Resolved]
  - Decreased appetite [Unknown]
  - Drug interaction [Unknown]
